FAERS Safety Report 7590004-2 (Version None)
Quarter: 2011Q3

REPORT INFORMATION
  Report Type: 
  Country: None (occurrence: None)
  Receive Date: 20110705
  Receipt Date: 20110627
  Transmission Date: 20111222
  Serious: Yes (Hospitalization)
  Sender: FDA-Public Use
  Company Number: A0931784A

PATIENT
  Age: 68 Year
  Sex: Female

DRUGS (2)
  1. LAMICTAL [Suspect]
     Indication: MUSCULOSKELETAL DISORDER
     Route: 065
     Dates: start: 20101019
  2. REBIF [Concomitant]
     Indication: MULTIPLE SCLEROSIS
     Dosage: 22MCG THREE TIMES PER WEEK
     Route: 058
     Dates: start: 20091201

REACTIONS (5)
  - RASH [None]
  - HEADACHE [None]
  - CONDITION AGGRAVATED [None]
  - VOMITING [None]
  - DRUG HYPERSENSITIVITY [None]
